FAERS Safety Report 19900972 (Version 2)
Quarter: 2021Q4

REPORT INFORMATION
  Report Type: Spontaneous
  Country: GB (occurrence: GB)
  Receive Date: 20210929
  Receipt Date: 20211001
  Transmission Date: 20220303
  Serious: Yes (Death, Other)
  Sender: FDA-Public Use
  Company Number: GB-002147023-NVSC2021GB211297

PATIENT

DRUGS (2)
  1. FLUDARABINE [Suspect]
     Active Substance: FLUDARABINE PHOSPHATE
     Indication: Product used for unknown indication
     Route: 065
  2. TISAGENLECLEUCEL [Suspect]
     Active Substance: TISAGENLECLEUCEL
     Indication: Acute lymphocytic leukaemia recurrent
     Dosage: SUSPENSION FOR INFUSION
     Route: 041

REACTIONS (4)
  - Death [Fatal]
  - Cytokine release syndrome [Unknown]
  - Coma [Unknown]
  - Neurotoxicity [Unknown]
